FAERS Safety Report 4698359-3 (Version None)
Quarter: 2005Q2

REPORT INFORMATION
  Report Type: 
  Country: None (occurrence: None)
  Receive Date: 20050621
  Receipt Date: 20050607
  Transmission Date: 20051028
  Serious: Yes (Life-Threatening, Hospitalization)
  Sender: FDA-Public Use
  Company Number: 214711

PATIENT
  Age: 69 Year
  Sex: Male
  Weight: 70 kg

DRUGS (17)
  1. MABTHERA(RITUXIMAB) CONC FOR SOLUTION FOR INFUSION [Suspect]
     Indication: DIFFUSE LARGE B-CELL LYMPHOMA
     Dosage: 680 MG, Q14D, INTRAVENOUS
     Route: 042
     Dates: start: 20050426, end: 20050513
  2. CYCLOPHOSPHAMIDE [Suspect]
     Indication: DIFFUSE LARGE B-CELL LYMPHOMA
     Dosage: Q14D, INTRAVENOUS
     Route: 042
     Dates: start: 20050427, end: 20050513
  3. DOXORUBICIN HYDROCHLORIDE [Suspect]
     Indication: DIFFUSE LARGE B-CELL LYMPHOMA
     Dosage: Q14D, INTRAVNEOUS
     Route: 042
     Dates: start: 20050427, end: 20050513
  4. VINCRISTINE [Suspect]
     Indication: DIFFUSE LARGE B-CELL LYMPHOMA
     Dosage: Q14D, INTRAVENOUS
     Route: 042
     Dates: start: 20050427, end: 20050513
  5. PREDNISONE [Suspect]
     Indication: DIFFUSE LARGE B-CELL LYMPHOMA
     Dosage: Q14D, INTRAVENOUS
     Route: 042
     Dates: start: 20050427, end: 20050513
  6. NEXIUM [Concomitant]
  7. LOCOL (FLUVASTATIN SODIUM) [Concomitant]
  8. ALLOPURINOL [Concomitant]
  9. BELOC-ZAK MITE (METOPROLOL SUCCINATE) [Concomitant]
  10. RAMIPRIL [Concomitant]
  11. PANTOZOL (PANTOPRAZOLE) [Concomitant]
  12. TORASEMID (TORSEMIDE) [Concomitant]
  13. METOPROLOL TARTRATE [Concomitant]
  14. KEPINOL ( TRIMETHOPRIM, SULFAMETHOXAZOLE) [Concomitant]
  15. AMPHOTHERICIN B (AMPHOTERICIN B) [Concomitant]
  16. CALCIUM (CALCIUM NOS) [Concomitant]
  17. ACICLOVIR (ACYCLOVIR) [Concomitant]

REACTIONS (4)
  - CATHETER SITE INFECTION [None]
  - FEBRILE NEUTROPENIA [None]
  - KLEBSIELLA INFECTION [None]
  - SEPSIS [None]
